FAERS Safety Report 6649847-1 (Version None)
Quarter: 2010Q1

REPORT INFORMATION
  Report Type: 
  Country: None (occurrence: None)
  Receive Date: 20100325
  Receipt Date: 20100317
  Transmission Date: 20100710
  Serious: Yes (Hospitalization)
  Sender: FDA-Public Use
  Company Number: US-BIOGENIDEC-2010BI007529

PATIENT
  Age: 29 Year
  Sex: Male

DRUGS (6)
  1. TYSABRI [Suspect]
     Indication: MULTIPLE SCLEROSIS
     Route: 042
     Dates: start: 20080917
  2. BACLOFEN [Concomitant]
  3. ADVAIR DISKUS 100/50 [Concomitant]
     Route: 048
  4. SINGULAIR [Concomitant]
  5. BENZONATATE [Concomitant]
     Route: 048
  6. PRILOSEC [Concomitant]

REACTIONS (5)
  - ASTHENIA [None]
  - CONVULSION [None]
  - ESCHERICHIA URINARY TRACT INFECTION [None]
  - URINARY TRACT INFECTION ENTEROCOCCAL [None]
  - URINARY TRACT INFECTION PSEUDOMONAL [None]
